FAERS Safety Report 11520389 (Version 1)
Quarter: 2015Q3

REPORT INFORMATION
  Report Type: Spontaneous
  Country: US (occurrence: US)
  Receive Date: 20150918
  Receipt Date: 20150918
  Transmission Date: 20151125
  Serious: No
  Sender: FDA-Public Use
  Company Number: US-RB-076345-15

PATIENT

DRUGS (2)
  1. MUCINEX [Suspect]
     Active Substance: GUAIFENESIN
     Indication: NASOPHARYNGITIS
  2. MUCINEX [Suspect]
     Active Substance: GUAIFENESIN
     Indication: BRONCHITIS
     Dosage: 600MG. PATIENT TOOK 2 PER DOSE INITIALLY THEN 2 PER DAY.,FREQUENCY UNK
     Route: 065
     Dates: start: 20150217

REACTIONS (3)
  - Product use issue [Not Recovered/Not Resolved]
  - Drug ineffective [Not Recovered/Not Resolved]
  - Incorrect drug administration duration [Not Recovered/Not Resolved]

NARRATIVE: CASE EVENT DATE: 20150217
